FAERS Safety Report 19899774 (Version 1)
Quarter: 2021Q3

REPORT INFORMATION
  Report Type: Spontaneous
  Country: US (occurrence: US)
  Receive Date: 20210929
  Receipt Date: 20210929
  Transmission Date: 20211014
  Serious: Yes (Hospitalization)
  Sender: FDA-Public Use
  Company Number: None

PATIENT
  Sex: Male

DRUGS (2)
  1. DARIFENACIN. [Concomitant]
     Active Substance: DARIFENACIN
  2. EVEROLIMUS 7.5 MG (7 TAB/CARD) [Suspect]
     Active Substance: EVEROLIMUS
     Indication: METASTASIS
     Route: 048
     Dates: start: 20210908

REACTIONS (1)
  - Renal failure [None]
